FAERS Safety Report 12377414 (Version 2)
Quarter: 2016Q3

REPORT INFORMATION
  Report Type: Spontaneous
  Country: US (occurrence: US)
  Receive Date: 20160517
  Receipt Date: 20160714
  Transmission Date: 20161109
  Serious: Yes (Other)
  Sender: FDA-Public Use
  Company Number: US-PFIZER INC-2016258183

PATIENT
  Age: 46 Year
  Sex: Male
  Weight: 102.6 kg

DRUGS (13)
  1. LISINOPRIL AND HYDROCHLOROTHIAZIDE [Concomitant]
     Active Substance: HYDROCHLOROTHIAZIDE\LISINOPRIL
     Indication: BLOOD PRESSURE INCREASED
  2. WARFARIN [Concomitant]
     Active Substance: WARFARIN
     Dosage: 6 MG, UNK (AS DIRECTED)
  3. LISINOPRIL AND HYDROCHLOROTHIAZIDE [Concomitant]
     Active Substance: HYDROCHLOROTHIAZIDE\LISINOPRIL
     Indication: BLOOD PRESSURE ABNORMAL
     Dosage: UNK, 1X/DAY
     Dates: start: 2005
  4. METFORMIN [Concomitant]
     Active Substance: METFORMIN HYDROCHLORIDE
     Indication: DIABETES MELLITUS
     Dosage: 500 MG, 2X/DAY
  5. ATORVASTATIN CALCIUM. [Concomitant]
     Active Substance: ATORVASTATIN CALCIUM
     Indication: BLOOD CHOLESTEROL ABNORMAL
     Dosage: 40 MG, DAILY
  6. VENTOLIN HFA [Concomitant]
     Active Substance: ALBUTEROL SULFATE
     Indication: DYSPNOEA
     Dosage: UNK, AS NEEDED (200 METERED)
     Dates: start: 201501
  7. NASAL SPRAY II [Concomitant]
     Indication: NASAL CONGESTION
     Dosage: UNK (JUST AT NIGHT ONCE)
  8. WARFARIN [Concomitant]
     Active Substance: WARFARIN
     Indication: BLOOD DISORDER
     Dosage: 4 MG, 1X/DAY (AS DIRECTED)
  9. OMEPRAZOLE. [Concomitant]
     Active Substance: OMEPRAZOLE
     Indication: GASTROOESOPHAGEAL REFLUX DISEASE
     Dosage: UNK
     Dates: start: 2007, end: 201406
  10. SERTRALINE [Concomitant]
     Active Substance: SERTRALINE HYDROCHLORIDE
     Indication: ANXIETY
     Dosage: 50 MG, 1X/DAY
     Dates: start: 2015
  11. VIAGRA [Suspect]
     Active Substance: SILDENAFIL CITRATE
     Indication: ERECTILE DYSFUNCTION
     Dosage: 50 MG, UNK
  12. VIAGRA [Suspect]
     Active Substance: SILDENAFIL CITRATE
     Dosage: 50 MG, 1X/DAY
     Dates: start: 20140608
  13. ATORVASTATIN CALCIUM. [Concomitant]
     Active Substance: ATORVASTATIN CALCIUM
     Dosage: UNK
     Dates: start: 2014, end: 201406

REACTIONS (3)
  - Diabetes mellitus [Recovered/Resolved]
  - Prostatomegaly [Recovered/Resolved]
  - Blood disorder [Recovered/Resolved]

NARRATIVE: CASE EVENT DATE: 2007
